FAERS Safety Report 13001972 (Version 2)
Quarter: 2016Q4

REPORT INFORMATION
  Report Type: Spontaneous
  Country: TR (occurrence: TR)
  Receive Date: 20161206
  Receipt Date: 20161208
  Transmission Date: 20170207
  Serious: Yes (Other)
  Sender: FDA-Public Use
  Company Number: PHHY2016TR164002

PATIENT
  Age: 49 Year
  Sex: Female

DRUGS (14)
  1. VITAMIN D [Suspect]
     Active Substance: CHOLECALCIFEROL
     Indication: IMMUNOSUPPRESSANT DRUG THERAPY
  2. ASPIRIN. [Suspect]
     Active Substance: ASPIRIN
     Indication: IMMUNOSUPPRESSANT DRUG THERAPY
  3. VITAMIN D [Suspect]
     Active Substance: CHOLECALCIFEROL
     Indication: RENAL TRANSPLANT
     Route: 065
  4. TACROLIMUS. [Suspect]
     Active Substance: TACROLIMUS
     Indication: RENAL TRANSPLANT
     Route: 065
  5. MYCOPHENOLIC ACID. [Suspect]
     Active Substance: MYCOPHENOLIC ACID
     Indication: RENAL TRANSPLANT
     Route: 065
  6. PREDNISOLONE. [Suspect]
     Active Substance: PREDNISOLONE
     Indication: IMMUNOSUPPRESSANT DRUG THERAPY
  7. TACROLIMUS. [Suspect]
     Active Substance: TACROLIMUS
     Indication: IMMUNOSUPPRESSANT DRUG THERAPY
  8. RAMIPRIL. [Suspect]
     Active Substance: RAMIPRIL
     Indication: RENAL TRANSPLANT
     Route: 065
  9. MYCOPHENOLIC ACID. [Suspect]
     Active Substance: MYCOPHENOLIC ACID
     Indication: IMMUNOSUPPRESSANT DRUG THERAPY
  10. PREDNISOLONE. [Suspect]
     Active Substance: PREDNISOLONE
     Indication: RENAL TRANSPLANT
     Route: 065
  11. ASPIRIN. [Suspect]
     Active Substance: ASPIRIN
     Indication: RENAL TRANSPLANT
     Route: 065
  12. DOXAZOSIN [Suspect]
     Active Substance: DOXAZOSIN\DOXAZOSIN MESYLATE
     Indication: IMMUNOSUPPRESSANT DRUG THERAPY
  13. RAMIPRIL. [Suspect]
     Active Substance: RAMIPRIL
     Indication: IMMUNOSUPPRESSANT DRUG THERAPY
  14. DOXAZOSIN [Suspect]
     Active Substance: DOXAZOSIN\DOXAZOSIN MESYLATE
     Indication: RENAL TRANSPLANT
     Route: 065

REACTIONS (1)
  - Invasive ductal breast carcinoma [Unknown]
